FAERS Safety Report 5667930-4 (Version None)
Quarter: 2008Q1

REPORT INFORMATION
  Report Type: 
  Country: None (occurrence: None)
  Receive Date: 20080315
  Receipt Date: 20080208
  Transmission Date: 20080703
  Serious: No
  Sender: FDA-Public Use
  Company Number: US-ABBOTT-08P-163-0437652-00

PATIENT
  Sex: Female
  Weight: 90.8 kg

DRUGS (12)
  1. HUMIRA [Suspect]
     Indication: ANKYLOSING SPONDYLITIS
     Route: 058
     Dates: start: 20080107
  2. HYDROMORPHONE HYDROCHLORIDE [Concomitant]
     Indication: PAIN
     Route: 058
     Dates: start: 20070101
  3. FENTANYL TRANSDERMAL SYSTEM [Concomitant]
     Indication: PAIN
     Dates: start: 20070101
  4. ZANAFLEX [Concomitant]
     Indication: MUSCLE SPASMS
     Route: 048
     Dates: start: 19990101
  5. VESACARE [Concomitant]
     Indication: URINARY INCONTINENCE
     Route: 048
     Dates: start: 20070101
  6. CLONAZEPAM [Concomitant]
     Indication: ANXIETY
     Route: 048
     Dates: start: 19900101
  7. PREGABALIN [Concomitant]
     Indication: FIBROMYALGIA
  8. ESCITALOPRAM OXALATE [Concomitant]
     Indication: DEPRESSION
  9. FUROSEMIDE [Concomitant]
     Indication: FLUID RETENTION
  10. METOLAZONE [Concomitant]
     Indication: FLUID RETENTION
     Route: 048
  11. ALDACAZINDE 50/50 [Concomitant]
     Indication: BLOOD PRESSURE
     Route: 048
  12. ALDACAZINDE 50/50 [Concomitant]
     Indication: DIURETIC THERAPY

REACTIONS (4)
  - GLOSSITIS [None]
  - ORAL DISCOMFORT [None]
  - ORAL MUCOSAL DISCOLOURATION [None]
  - STOMATITIS [None]
